FAERS Safety Report 24127295 (Version 1)
Quarter: 2024Q3

REPORT INFORMATION
  Report Type: Report from Study
  Country: US (occurrence: US)
  Receive Date: 20240723
  Receipt Date: 20240723
  Transmission Date: 20241017
  Serious: No
  Sender: VANDA PHARMACEUTICALS
  Company Number: US-VANDA PHARMACEUTICALS, INC-2023TASUS006567

PATIENT
  Sex: Female
  Weight: 30.839 kg

DRUGS (1)
  1. HETLIOZ LQ [Suspect]
     Active Substance: TASIMELTEON
     Indication: Smith-Magenis syndrome
     Dosage: 20 MILLIGRAM (5 ML), QD, EVERY 24 HOURS, 1 HOUR BEFORE BEDTIME
     Route: 048
     Dates: start: 202301, end: 20230614

REACTIONS (3)
  - Self-destructive behaviour [Unknown]
  - Anger [Unknown]
  - Middle insomnia [Unknown]
